FAERS Safety Report 13492208 (Version 4)
Quarter: 2017Q3

REPORT INFORMATION
  Report Type: Report from Study
  Country: US (occurrence: US)
  Receive Date: 20170427
  Receipt Date: 20170809
  Transmission Date: 20171127
  Serious: Yes (Hospitalization)
  Sender: FDA-Public Use
  Company Number: US-OTSUKA-2017_004433

PATIENT
  Sex: Female

DRUGS (2)
  1. ARIPIPRAZOLE. [Suspect]
     Active Substance: ARIPIPRAZOLE
     Indication: SCHIZOPHRENIA
     Dosage: 400 MG, QM (STRENGTH: 400 MG)
     Route: 030
  2. ARIPIPRAZOLE. [Suspect]
     Active Substance: ARIPIPRAZOLE
     Dosage: 400 MG, QM (STRENGTH: 400 MG)
     Route: 030
     Dates: start: 20170423

REACTIONS (7)
  - Inappropriate schedule of drug administration [Unknown]
  - Injection site pain [Unknown]
  - Drug administration error [Unknown]
  - Hospitalisation [Recovered/Resolved]
  - Food craving [Unknown]
  - Weight increased [Unknown]
  - Overdose [Unknown]
